FAERS Safety Report 5381591-3 (Version None)
Quarter: 2007Q2

REPORT INFORMATION
  Report Type: 
  Country: None (occurrence: None)
  Receive Date: 20070629
  Receipt Date: 20070223
  Transmission Date: 20071010
  Serious: Yes (Hospitalization)
  Sender: FDA-Public Use
  Company Number: 2007006924

PATIENT
  Age: 59 Year
  Sex: Female
  Weight: 68 kg

DRUGS (3)
  1. ZOLOFT [Suspect]
     Indication: MAJOR DEPRESSION
     Dosage: 100 MG (100 MG, 1 IN 1 D);
     Dates: start: 20010101
  2. FOSAMAX [Concomitant]
  3. LIPITOR [Concomitant]

REACTIONS (2)
  - DEPRESSION [None]
  - GRAND MAL CONVULSION [None]
